FAERS Safety Report 9408327 (Version 1)
Quarter: 2013Q3

REPORT INFORMATION
  Report Type: Spontaneous
  Country: FR (occurrence: FR)
  Receive Date: 20130718
  Receipt Date: 20130718
  Transmission Date: 20140515
  Serious: Yes (Other)
  Sender: FDA-Public Use
  Company Number: FR-GLAXOSMITHKLINE-B0907286A

PATIENT
  Age: 22 Year
  Sex: Male

DRUGS (8)
  1. LAMICTAL [Suspect]
     Indication: EPILEPSY
     Route: 048
     Dates: end: 20130414
  2. ISOTRETINOIN [Suspect]
     Indication: ACNE
     Route: 048
     Dates: start: 201204, end: 20130409
  3. DEPAKINE CHRONO [Suspect]
     Indication: EPILEPSY
     Dosage: 750MG TWICE PER DAY
     Route: 048
  4. OFLOXACINE [Concomitant]
     Dosage: 400MG PER DAY
     Route: 048
     Dates: start: 20130322, end: 20130325
  5. CEFTRIAXONE SODIUM [Concomitant]
     Dosage: 4G PER DAY
     Route: 042
     Dates: start: 20130317, end: 20130325
  6. FLAGYL [Concomitant]
     Dosage: 600MG PER DAY
     Route: 048
     Dates: start: 20130317, end: 20130325
  7. AMIKACINE [Concomitant]
     Route: 065
     Dates: start: 20130317, end: 20130321
  8. ZEBINIX [Concomitant]
     Route: 065
     Dates: start: 20130212, end: 20130312

REACTIONS (2)
  - Agranulocytosis [Recovered/Resolved]
  - Aspartate aminotransferase decreased [Unknown]
